FAERS Safety Report 17310088 (Version 1)
Quarter: 2020Q1

REPORT INFORMATION
  Report Type: Spontaneous
  Country: US (occurrence: US)
  Receive Date: 20200123
  Receipt Date: 20200123
  Transmission Date: 20200409
  Serious: No
  Sender: FDA-Public Use
  Company Number: US-ROCHE-2272784

PATIENT
  Age: 65 Year
  Sex: Female

DRUGS (3)
  1. ZYDELIG [Suspect]
     Active Substance: IDELALISIB
     Indication: BREAST CANCER
     Route: 048
     Dates: start: 20181030, end: 20190220
  2. ZYDELIG [Suspect]
     Active Substance: IDELALISIB
     Route: 048
     Dates: start: 20190315
  3. RITUXAN [Suspect]
     Active Substance: RITUXIMAB
     Indication: BREAST CANCER
     Dosage: INTERRUPTED ON 07/FEB/2019
     Route: 042
     Dates: start: 20181015, end: 201904

REACTIONS (10)
  - Malaise [Not Recovered/Not Resolved]
  - Influenza [Unknown]
  - Fatigue [Unknown]
  - Constipation [Recovering/Resolving]
  - Immune system disorder [Not Recovered/Not Resolved]
  - Diarrhoea [Recovering/Resolving]
  - Intentional product use issue [Unknown]
  - Blood count abnormal [Not Recovered/Not Resolved]
  - Bronchitis [Not Recovered/Not Resolved]
  - Off label use [Unknown]

NARRATIVE: CASE EVENT DATE: 20190118
